FAERS Safety Report 12601701 (Version 1)
Quarter: 2016Q3

REPORT INFORMATION
  Report Type: Spontaneous
  Country: US (occurrence: None)
  Receive Date: 20160727
  Receipt Date: 20160727
  Transmission Date: 20161109
  Serious: Yes (Other)
  Sender: FDA-Public Use
  Company Number: None

PATIENT
  Age: 43 Year
  Sex: Male
  Weight: 95.26 kg

DRUGS (3)
  1. MULTI SYMPTOM ALLERGY RELIEF [Concomitant]
  2. REXALL ACETAMINOPHEN [Concomitant]
  3. INVEGA [Suspect]
     Active Substance: PALIPERIDONE
     Indication: DEPRESSION
     Dosage: 3 MG 1 PILL 1 PER DAY MOUTH
     Route: 048
     Dates: start: 20160713

REACTIONS (10)
  - Fatigue [None]
  - Mental impairment [None]
  - Food poisoning [None]
  - Headache [None]
  - Memory impairment [None]
  - Somnolence [None]
  - Dizziness [None]
  - Disturbance in attention [None]
  - Malaise [None]
  - Heart rate increased [None]

NARRATIVE: CASE EVENT DATE: 20160713
